FAERS Safety Report 9443548 (Version 1)
Quarter: 2013Q3

REPORT INFORMATION
  Report Type: Spontaneous
  Country: US (occurrence: US)
  Receive Date: 20130806
  Receipt Date: 20130806
  Transmission Date: 20140515
  Serious: No
  Sender: FDA-Public Use
  Company Number: US-PFIZER INC-2013227060

PATIENT
  Sex: Female

DRUGS (1)
  1. CELEBREX [Suspect]
     Dosage: UNK

REACTIONS (5)
  - Dizziness [Unknown]
  - Dysstasia [Unknown]
  - Fall [Unknown]
  - Back pain [Unknown]
  - Musculoskeletal pain [Unknown]
